FAERS Safety Report 5395298-X (Version None)
Quarter: 2007Q3

REPORT INFORMATION
  Report Type: 
  Country: None (occurrence: None)
  Receive Date: 20070724
  Receipt Date: 20070716
  Transmission Date: 20080115
  Serious: Yes (Disabling)
  Sender: FDA-Public Use
  Company Number: FI-ASTRAZENECA-2007SE04059

PATIENT
  Age: 33 Year
  Sex: Female

DRUGS (3)
  1. ZOLADEX [Suspect]
     Indication: PROPHYLACTIC CHEMOTHERAPY
     Route: 030
     Dates: start: 20060331, end: 20060623
  2. TAXOTERE [Suspect]
     Indication: PROPHYLACTIC CHEMOTHERAPY
     Dates: start: 20060301
  3. BURANA [Concomitant]
     Indication: PAIN

REACTIONS (3)
  - HOT FLUSH [None]
  - MYALGIA [None]
  - NIGHT SWEATS [None]
